FAERS Safety Report 7324746-0 (Version None)
Quarter: 2011Q1

REPORT INFORMATION
  Report Type: 
  Country: None (occurrence: None)
  Receive Date: 20110301
  Receipt Date: 20110217
  Transmission Date: 20110831
  Serious: Yes (Other)
  Sender: FDA-Public Use
  Company Number: US-ELI_LILLY_AND_COMPANY-US201010001749

PATIENT
  Sex: Female
  Weight: 53.061 kg

DRUGS (6)
  1. PREDNISONE [Concomitant]
     Dates: start: 19700101
  2. FORTEO [Suspect]
     Dosage: 20 UG, DAILY (1/D)
     Route: 065
  3. CELEBREX [Concomitant]
     Dosage: UNK, DAILY (1/D)
  4. FORTEO [Suspect]
     Dosage: 20 UG, DAILY (1/D)
     Route: 065
  5. CELEBREX [Concomitant]
     Indication: RHEUMATOID ARTHRITIS
     Dosage: UNK, 2/D
  6. FORTEO [Suspect]
     Indication: OSTEOPOROSIS
     Dosage: 20 UG, DAILY (1/D)
     Route: 065
     Dates: start: 20100716

REACTIONS (11)
  - OEDEMA PERIPHERAL [None]
  - CONTUSION [None]
  - INJECTION SITE ERYTHEMA [None]
  - INJECTION SITE PAIN [None]
  - MALAISE [None]
  - MUSCULOSKELETAL STIFFNESS [None]
  - THROMBOSIS [None]
  - SKIN DISORDER [None]
  - POLYARTHRITIS [None]
  - ERYTHEMA [None]
  - PAIN [None]
